FAERS Safety Report 8511935 (Version 3)
Quarter: 2012Q4

REPORT INFORMATION
  Report Type: 
  Country: US (occurrence: US)
  Receive Date: 20120413
  Receipt Date: 20121226
  Transmission Date: 20130627
  Serious: Yes (Other)
  Sender: FDA-Public Use
  Company Number: US-ASTRAZENECA-2012SE13641

PATIENT
  Age: 88 Year
  Sex: Female

DRUGS (3)
  1. NEXIUM [Suspect]
     Indication: GASTROOESOPHAGEAL REFLUX DISEASE
     Route: 048
  2. ASPIRIN [Concomitant]
     Indication: CARDIAC DISORDER
  3. BYSTOLIC [Concomitant]
     Indication: CARDIAC DISORDER

REACTIONS (5)
  - Fall [Unknown]
  - Spinal fracture [Unknown]
  - Oropharyngeal pain [Recovering/Resolving]
  - Gastrooesophageal reflux disease [Unknown]
  - Intentional drug misuse [Unknown]
